FAERS Safety Report 21187780 (Version 1)
Quarter: 2022Q3

REPORT INFORMATION
  Report Type: Spontaneous
  Country: US (occurrence: None)
  Receive Date: 20220809
  Receipt Date: 20220809
  Transmission Date: 20221026
  Serious: No
  Sender: FDA-Public Use
  Company Number: US-ROCHE-3060963

PATIENT
  Age: 48 Year
  Sex: Male

DRUGS (5)
  1. RISDIPLAM [Suspect]
     Active Substance: RISDIPLAM
     Indication: Spinal muscular atrophy
     Route: 048
     Dates: start: 20201021
  2. RISDIPLAM [Suspect]
     Active Substance: RISDIPLAM
  3. RISDIPLAM [Suspect]
     Active Substance: RISDIPLAM
  4. RISDIPLAM [Suspect]
     Active Substance: RISDIPLAM
  5. RISDIPLAM [Suspect]
     Active Substance: RISDIPLAM

REACTIONS (1)
  - Urinary tract infection [Recovered/Resolved]

NARRATIVE: CASE EVENT DATE: 20220318
